FAERS Safety Report 9538282 (Version 1)
Quarter: 2013Q3

REPORT INFORMATION
  Report Type: Spontaneous
  Country: US (occurrence: US)
  Receive Date: 20130920
  Receipt Date: 20130920
  Transmission Date: 20140515
  Serious: Yes (Hospitalization)
  Sender: FDA-Public Use
  Company Number: US-BRISTOL-MYERS SQUIBB COMPANY-19344043

PATIENT
  Age: 30 Year
  Sex: Male

DRUGS (3)
  1. ABILIFY TABS 30 MG [Suspect]
     Indication: SCHIZOPHRENIA
     Dosage: QAM
  2. COCAINE [Suspect]
  3. DAYTRANA [Concomitant]
     Indication: ATTENTION DEFICIT/HYPERACTIVITY DISORDER

REACTIONS (1)
  - Hallucination, auditory [Unknown]
